FAERS Safety Report 16003904 (Version 1)
Quarter: 2019Q1

REPORT INFORMATION
  Report Type: Report from Study
  Country: US (occurrence: US)
  Receive Date: 20190226
  Receipt Date: 20190226
  Transmission Date: 20190418
  Serious: Yes (Hospitalization, Other)
  Sender: FDA-Public Use
  Company Number: US-UCBSA-2018036212

PATIENT
  Age: 61 Year
  Sex: Female

DRUGS (8)
  1. ONFI [Suspect]
     Active Substance: CLOBAZAM
     Indication: EPILEPSY
     Dosage: 40 MG, ONCE DAILY (QD)
     Route: 048
     Dates: start: 201812
  2. BRIVARACETAM [Suspect]
     Active Substance: BRIVARACETAM
     Indication: EPILEPSY
     Dosage: 35 MG, ONCE DAILY (QD)
     Route: 048
     Dates: start: 20180806, end: 20180812
  3. BRIVARACETAM [Suspect]
     Active Substance: BRIVARACETAM
     Dosage: 75 MG, 2X/DAY (BID)
     Route: 048
     Dates: start: 20180820
  4. BRIVARACETAM [Suspect]
     Active Substance: BRIVARACETAM
     Dosage: 150 MG, 2X/DAY (BID)
     Route: 048
  5. KEPPRA [Suspect]
     Active Substance: LEVETIRACETAM
     Dosage: 500 MG, 2X/DAY (BID)
     Route: 048
     Dates: start: 20180820
  6. ALBUTEROL. [Concomitant]
     Active Substance: ALBUTEROL
     Indication: ASTHMA
     Dosage: UNK, AS NEEDED (PRN)
  7. KEPPRA [Suspect]
     Active Substance: LEVETIRACETAM
     Indication: EPILEPSY
     Dosage: 1500 MG, 2X/DAY (BID)
     Route: 048
  8. BRIVARACETAM [Suspect]
     Active Substance: BRIVARACETAM
     Dosage: 75 MG, ONCE DAILY (QD)
     Route: 048
     Dates: start: 20180813, end: 20180819

REACTIONS (6)
  - Bronchitis [Recovering/Resolving]
  - Breast cancer [Not Recovered/Not Resolved]
  - Prescribed overdose [Unknown]
  - Sedation [Not Recovered/Not Resolved]
  - Somnolence [Not Recovered/Not Resolved]
  - Off label use [Unknown]

NARRATIVE: CASE EVENT DATE: 20180806
